FAERS Safety Report 8798774 (Version 1)
Quarter: 2012Q4

REPORT INFORMATION
  Report Type: Report from Study
  Country: GB (occurrence: GB)
  Receive Date: 20120920
  Receipt Date: 20120920
  Transmission Date: 20130627
  Serious: Yes (Hospitalization)
  Sender: FDA-Public Use
  Company Number: GB-JNJFOC-20120905250

PATIENT
  Age: 81 Year
  Sex: Female
  Weight: 83.6 kg

DRUGS (5)
  1. USTEKINUMAB [Suspect]
     Indication: PSORIASIS
     Route: 058
     Dates: start: 20110211
  2. ASPIRIN [Concomitant]
     Route: 065
     Dates: start: 20040101
  3. CLOPIDOGREL [Concomitant]
     Route: 065
     Dates: start: 20040101
  4. ENALAPRIL [Concomitant]
     Route: 065
     Dates: start: 20040101
  5. SIMVASTATIN [Concomitant]
     Route: 065
     Dates: start: 20040101

REACTIONS (1)
  - Gastrointestinal haemorrhage [Recovered/Resolved]
